FAERS Safety Report 21039804 (Version 1)
Quarter: 2022Q3

REPORT INFORMATION
  Report Type: Spontaneous
  Country: CN (occurrence: CN)
  Receive Date: 20220704
  Receipt Date: 20220704
  Transmission Date: 20221026
  Serious: Yes (Other)
  Sender: FDA-Public Use
  Company Number: CN-PFIZER INC-PV202200013505

PATIENT
  Age: 33 Year
  Sex: Female
  Weight: 61 kg

DRUGS (1)
  1. ZITHROMAX [Suspect]
     Active Substance: AZITHROMYCIN DIHYDRATE
     Indication: Anti-infective therapy
     Dosage: 0.5 G, 1X/DAY
     Route: 041
     Dates: start: 20220508, end: 20220509

REACTIONS (3)
  - Phlebitis [Recovering/Resolving]
  - Infusion site erythema [Recovering/Resolving]
  - Infusion site swelling [Recovering/Resolving]

NARRATIVE: CASE EVENT DATE: 20220509
